FAERS Safety Report 17987649 (Version 3)
Quarter: 2020Q4

REPORT INFORMATION
  Report Type: Other
  Country: ES (occurrence: ES)
  Receive Date: 20200707
  Receipt Date: 20201214
  Transmission Date: 20210113
  Serious: Yes (Other)
  Sender: FDA-Public Use
  Company Number: ES-ROCHE-2635436

PATIENT

DRUGS (1)
  1. TOCILIZUMAB. [Suspect]
     Active Substance: TOCILIZUMAB
     Indication: COVID-19 PNEUMONIA
     Route: 042

REACTIONS (10)
  - Hyperkalaemia [Unknown]
  - Blood creatinine increased [Unknown]
  - Candida infection [Unknown]
  - Blood bilirubin increased [Unknown]
  - Headache [Unknown]
  - Pseudomonas infection [Unknown]
  - Hepatic enzyme increased [Unknown]
  - Aspergillus infection [Unknown]
  - Klebsiella infection [Unknown]
  - Enterococcal infection [Unknown]
